FAERS Safety Report 7652299-6 (Version None)
Quarter: 2011Q3

REPORT INFORMATION
  Report Type: 
  Country: None (occurrence: None)
  Receive Date: 20110803
  Receipt Date: 20110719
  Transmission Date: 20111222
  Serious: Yes (Other)
  Sender: FDA-Public Use
  Company Number: GB-BAYER-2011-016194

PATIENT
  Age: 55 Year
  Sex: Female

DRUGS (14)
  1. CITALOPRAM [Concomitant]
  2. INTERFERON BETA-1B [Suspect]
     Indication: MULTIPLE SCLEROSIS
     Dosage: 250 ?G, QOD
     Route: 058
     Dates: start: 19960731, end: 20110202
  3. OXYCONTIN [Concomitant]
  4. GABAPENTIN [Concomitant]
  5. AMITRIPTYLINE HCL [Concomitant]
  6. CANDESARTAN CILEXETIL [Concomitant]
  7. SIMVASTATIN [Concomitant]
  8. DICLOFENAC SODIUM [Concomitant]
  9. DIAZEPAM [Concomitant]
  10. INTERFERON BETA-1B [Suspect]
     Dosage: UNK
     Route: 058
     Dates: end: 20110701
  11. AMANTADINE HCL [Concomitant]
  12. BACLOFEN [Concomitant]
  13. CLONIDINE [Concomitant]
  14. SPIRONOLACTONE [Concomitant]

REACTIONS (3)
  - PAIN [None]
  - SKIN ULCER [None]
  - HAEMOGLOBIN DECREASED [None]
